FAERS Safety Report 20297562 (Version 3)
Quarter: 2022Q1

REPORT INFORMATION
  Report Type: Report from Study
  Country: HU (occurrence: HU)
  Receive Date: 20220105
  Receipt Date: 20220209
  Transmission Date: 20220424
  Serious: Yes (Hospitalization, Other)
  Sender: FDA-Public Use
  Company Number: HU-ABBVIE-22K-076-4219081-00

PATIENT
  Sex: Female

DRUGS (9)
  1. CARBIDOPA\LEVODOPA [Suspect]
     Active Substance: CARBIDOPA\LEVODOPA
     Indication: Parkinson^s disease
     Dosage: MORNING DOSE: 7.5 ML; CONTINUOUS DOSE: 4.1 ML/HOUR; EXTRA DOSE: 1.5 ML
     Route: 050
     Dates: start: 20180919
  2. CARBIDOPA\LEVODOPA [Suspect]
     Active Substance: CARBIDOPA\LEVODOPA
     Dosage: MORNING DOSE: 7.0 ML; CONTINUOUS DOSE: 3.9 ML/HOUR; EXTRA DOSE: 1.5 ML
     Route: 050
     Dates: end: 20220202
  3. CARBIDOPA\LEVODOPA [Suspect]
     Active Substance: CARBIDOPA\LEVODOPA
     Dosage: MORNING DOSE: 6.0 ML; CONTINUOUS DOSE: 3.6 ML/HOUR; EXTRA DOSE: 1.5 ML
     Route: 050
     Dates: start: 20220202
  4. TREXAN [Concomitant]
     Indication: Product used for unknown indication
     Dosage: EVERY SATURDAY 20 MGPER
     Route: 048
  5. VITAMIN B12 [Concomitant]
     Active Substance: CYANOCOBALAMIN
     Indication: Product used for unknown indication
     Dosage: 1 INJECTION PER MONTH
     Route: 030
  6. BENSERAZIDE HYDROCHLORIDE\LEVODOPA [Concomitant]
     Active Substance: BENSERAZIDE HYDROCHLORIDE\LEVODOPA
     Indication: Parkinson^s disease
     Dosage: 200 MG LEVODOPA, 50 MG BESERAZIDE / TABLET, AT 1 AM
     Route: 048
     Dates: end: 20201027
  7. BENSERAZIDE HYDROCHLORIDE\LEVODOPA [Concomitant]
     Active Substance: BENSERAZIDE HYDROCHLORIDE\LEVODOPA
     Indication: Parkinson^s disease
     Dosage: 200 MG LEVODOPA, 50 MG BESERAZIDE / TABLET, AT 1 AM
     Route: 048
     Dates: start: 20201027
  8. BENSERAZIDE HYDROCHLORIDE\LEVODOPA [Concomitant]
     Active Substance: BENSERAZIDE HYDROCHLORIDE\LEVODOPA
     Dosage: 200 MG LEVODOPA, 50 MG BESERAZIDE / TABLET, AT 4 AM
     Route: 048
     Dates: start: 20211227
  9. BENSERAZIDE HYDROCHLORIDE\LEVODOPA [Concomitant]
     Active Substance: BENSERAZIDE HYDROCHLORIDE\LEVODOPA
     Dosage: 100 MG LEVODOPA, 25 MG BESERAZIDE / TABLET, AT 1 AM
     Route: 048
     Dates: start: 20211227

REACTIONS (4)
  - Limb injury [Unknown]
  - Femoral neck fracture [Recovering/Resolving]
  - Fall [Unknown]
  - Hallucination [Not Recovered/Not Resolved]

NARRATIVE: CASE EVENT DATE: 20211227
